FAERS Safety Report 13436916 (Version 1)
Quarter: 2017Q2

REPORT INFORMATION
  Report Type: Spontaneous
  Country: US (occurrence: US)
  Receive Date: 20170413
  Receipt Date: 20170413
  Transmission Date: 20170830
  Serious: No
  Sender: FDA-Public Use
  Company Number: US-SA-2016SA222591

PATIENT
  Age: 76 Year
  Sex: Female

DRUGS (1)
  1. ALLEGRA D-12 HOUR [Suspect]
     Active Substance: FEXOFENADINE HYDROCHLORIDE\PSEUDOEPHEDRINE HYDROCHLORIDE
     Indication: MULTIPLE ALLERGIES
     Dosage: START DATE:- 20 YEARS AGO
     Route: 048

REACTIONS (6)
  - Somnolence [Unknown]
  - Product use issue [Unknown]
  - Hypertension [Unknown]
  - Heart rate increased [Unknown]
  - Dysphonia [Unknown]
  - Unevaluable event [Unknown]
